FAERS Safety Report 8142300-8 (Version None)
Quarter: 2012Q1

REPORT INFORMATION
  Report Type: 
  Country: None (occurrence: None)
  Receive Date: 20120216
  Receipt Date: 20120210
  Transmission Date: 20120608
  Serious: Yes (Other)
  Sender: FDA-Public Use
  Company Number: VE-ELI_LILLY_AND_COMPANY-VE201202003892

PATIENT
  Age: 3 Year
  Sex: Female

DRUGS (1)
  1. HUMALOG [Suspect]
     Dosage: UNK
     Dates: start: 20120118

REACTIONS (2)
  - BLOOD GLUCOSE INCREASED [None]
  - UNDERDOSE [None]
